FAERS Safety Report 25079659 (Version 5)
Quarter: 2025Q2

REPORT INFORMATION
  Report Type: Report from Study
  Country: US (occurrence: US)
  Receive Date: 20250314
  Receipt Date: 20250606
  Transmission Date: 20250716
  Serious: Yes (Other)
  Sender: ROCHE
  Company Number: US-ROCHE-10000156630

PATIENT
  Age: 79 Year
  Sex: Female
  Weight: 41.0 kg

DRUGS (21)
  1. AVASTIN [Suspect]
     Active Substance: BEVACIZUMAB
     Indication: Carcinoid tumour
     Dosage: DATE OF SERVICE WAS 16-JAN-2025.STRENGTH: 25MG/ML
     Route: 042
     Dates: start: 20250529
  2. AVASTIN [Suspect]
     Active Substance: BEVACIZUMAB
     Dosage: DATE OF SERVICE WAS 06-FEB-2025.
     Route: 042
  3. AVASTIN [Suspect]
     Active Substance: BEVACIZUMAB
     Dosage: DATE OF SERVICE: 28-FEB-2025
     Route: 042
  4. AVASTIN [Suspect]
     Active Substance: BEVACIZUMAB
     Dosage: DATE OF SERVICE: 03-MAR-2025
     Route: 042
  5. AVASTIN [Suspect]
     Active Substance: BEVACIZUMAB
     Dosage: DATE OF SERVICE: 20-MAR-2025
     Route: 042
  6. AVASTIN [Suspect]
     Active Substance: BEVACIZUMAB
     Route: 042
  7. CAPECITABINE [Concomitant]
     Active Substance: CAPECITABINE
     Route: 048
  8. CAPECITABINE [Concomitant]
     Active Substance: CAPECITABINE
     Route: 048
  9. APIXABAN [Concomitant]
     Active Substance: APIXABAN
  10. AMLODIPINE [Concomitant]
     Active Substance: AMLODIPINE BESYLATE
     Route: 048
  11. MECLIZINE [Concomitant]
     Active Substance: MECLIZINE HYDROCHLORIDE
  12. SIMVASTATIN [Concomitant]
     Active Substance: SIMVASTATIN
  13. XALATAN [Concomitant]
     Active Substance: LATANOPROST
  14. OCTREOTIDE [Concomitant]
     Active Substance: OCTREOTIDE
  15. TRIFLURIDINE [Concomitant]
     Active Substance: TRIFLURIDINE
  16. TIPIRACIL [Concomitant]
     Active Substance: TIPIRACIL
  17. LANREOTIDE [Concomitant]
     Active Substance: LANREOTIDE
  18. CHOLECALCIFEROL [Concomitant]
     Active Substance: CHOLECALCIFEROL
     Route: 048
  19. VENTOLIN HFA (Albuterol HFA INHALER 90 mcg/acuation) [Concomitant]
  20. VITAMIN B12 [Concomitant]
     Active Substance: CYANOCOBALAMIN
     Route: 048
  21. ZINC [Concomitant]
     Active Substance: ZINC
     Route: 048

REACTIONS (27)
  - Off label use [Unknown]
  - Deep vein thrombosis [Unknown]
  - Breast mass [Unknown]
  - Palmar-plantar erythrodysaesthesia syndrome [Unknown]
  - Tumour pain [Unknown]
  - Anaemia [Unknown]
  - Ascites [Unknown]
  - Constipation [Unknown]
  - Hypertension [Unknown]
  - Iron deficiency [Unknown]
  - Vitamin B12 deficiency [Unknown]
  - Vitamin D deficiency [Unknown]
  - Haematocrit decreased [Unknown]
  - Haemoglobin decreased [Unknown]
  - Neuroendocrine carcinoma [Unknown]
  - Abdominal pain [Unknown]
  - Abnormal loss of weight [Unknown]
  - Oedema peripheral [Unknown]
  - Pelvic pain [Unknown]
  - Small intestinal obstruction [Unknown]
  - Colon cancer [Unknown]
  - Neuropathy peripheral [Unknown]
  - Leukopenia [Unknown]
  - Metastases to liver [Unknown]
  - Vomiting [Unknown]
  - Blood creatinine decreased [Recovered/Resolved]
  - Platelet count increased [Recovered/Resolved]
